FAERS Safety Report 8331406-6 (Version None)
Quarter: 2012Q2

REPORT INFORMATION
  Report Type: 
  Country: None (occurrence: None)
  Receive Date: 20120502
  Receipt Date: 20120417
  Transmission Date: 20120825
  Serious: No
  Sender: FDA-Public Use
  Company Number: US-AMGEN-USASP2012024566

PATIENT
  Age: 45 Year
  Sex: Female

DRUGS (11)
  1. HYDROMORPHONE HCL [Concomitant]
     Dosage: UNK MG, UNK
  2. METHADONE HCL [Concomitant]
     Dosage: UNK MG, UNK
  3. LEFLUNOMIDE [Concomitant]
     Dosage: UNK MG, UNK
  4. KLONOPIN [Concomitant]
     Dosage: UNK
  5. CLARITIN-D [Concomitant]
     Dosage: UNK
  6. OMEPRAZOLE [Concomitant]
     Dosage: UNK MG, UNK
  7. VALIUM [Concomitant]
     Dosage: UNK MG, UNK
  8. BACLOFEN [Concomitant]
     Dosage: UNK MG, UNK
  9. SULFASALAZINE [Concomitant]
     Dosage: UNK MG, UNK
  10. VITAMIN D [Concomitant]
     Dosage: UNK
  11. ENBREL [Suspect]
     Indication: RHEUMATOID ARTHRITIS
     Dosage: 50 MG, QWK
     Dates: start: 20120401

REACTIONS (3)
  - VISUAL IMPAIRMENT [None]
  - DIPLOPIA [None]
  - VISION BLURRED [None]
